FAERS Safety Report 5110292-1 (Version None)
Quarter: 2006Q3

REPORT INFORMATION
  Report Type: 
  Country: None (occurrence: None)
  Receive Date: 20060921
  Receipt Date: 20060911
  Transmission Date: 20061208
  Serious: Yes (Other)
  Sender: FDA-Public Use
  Company Number: US-ROCHE-463002

PATIENT
  Age: 36 Year
  Sex: Male

DRUGS (1)
  1. ISOTRETINOIN [Suspect]
     Dosage: DOSAGE REGIMEN  PROVIDED AS: 2AM/1PM.
     Route: 048
     Dates: start: 20060508, end: 20060913

REACTIONS (2)
  - AGGRESSION [None]
  - PHYSICAL ASSAULT [None]
